FAERS Safety Report 9748934 (Version 1)
Quarter: 2013Q4

REPORT INFORMATION
  Report Type: Spontaneous
  Country: US (occurrence: US)
  Receive Date: 20131212
  Receipt Date: 20131212
  Transmission Date: 20140711
  Serious: Yes (Other)
  Sender: FDA-Public Use
  Company Number: US-JNJFOC-20131205322

PATIENT
  Age: 3 Decade
  Sex: Female

DRUGS (1)
  1. XARELTO [Suspect]
     Indication: METHYLENETETRAHYDROFOLATE REDUCTASE POLYMORPHISM
     Route: 048

REACTIONS (2)
  - Thrombosis [Unknown]
  - Off label use [Unknown]
